FAERS Safety Report 5595104-4 (Version None)
Quarter: 2008Q1

REPORT INFORMATION
  Report Type: 
  Country: None (occurrence: None)
  Receive Date: 20080117
  Receipt Date: 20080115
  Transmission Date: 20080703
  Serious: Yes (Death)
  Sender: FDA-Public Use
  Company Number: JP-SANOFI-SYNTHELABO-F01200800067

PATIENT
  Sex: Male

DRUGS (4)
  1. CALCIUM LEVOFOLINATE [Suspect]
     Dosage: UNK
     Route: 042
  2. OXALIPLATIN [Suspect]
     Dosage: UNK
     Route: 042
  3. FLUOROURACIL [Suspect]
     Dosage: UNK
     Route: 042
  4. BEVACIZUMAB [Suspect]
     Indication: COLON CANCER RECURRENT
     Route: 042
     Dates: start: 20071217, end: 20071217

REACTIONS (1)
  - ACUTE RESPIRATORY DISTRESS SYNDROME [None]
